FAERS Safety Report 9266225 (Version 1)
Quarter: 2013Q2

REPORT INFORMATION
  Report Type: Report from Study
  Country: JP (occurrence: JP)
  Receive Date: 20130502
  Receipt Date: 20130502
  Transmission Date: 20140414
  Serious: Yes (Death)
  Sender: FDA-Public Use
  Company Number: JP-ROCHE-1220384

PATIENT
  Sex: 0

DRUGS (10)
  1. RITUXIMAB [Suspect]
     Indication: LYMPHOMA AIDS RELATED
     Route: 065
  2. CYCLOPHOSPHAMIDE [Suspect]
     Indication: LYMPHOMA AIDS RELATED
     Route: 065
  3. VINCRISTINE [Suspect]
     Indication: LYMPHOMA AIDS RELATED
     Route: 065
  4. DOXORUBICIN [Suspect]
     Indication: LYMPHOMA AIDS RELATED
     Route: 065
  5. METHOTREXATE [Suspect]
     Indication: LYMPHOMA AIDS RELATED
     Route: 065
  6. IFOSFAMIDE [Suspect]
     Indication: LYMPHOMA AIDS RELATED
     Route: 065
  7. MESNA [Suspect]
     Indication: LYMPHOMA AIDS RELATED
     Route: 065
  8. ETOPOSIDE [Suspect]
     Indication: LYMPHOMA AIDS RELATED
     Route: 065
  9. CYTARABINE [Suspect]
     Indication: LYMPHOMA AIDS RELATED
     Route: 065
  10. DEXAMETHASONE [Suspect]
     Indication: LYMPHOMA AIDS RELATED
     Route: 065

REACTIONS (1)
  - Death [Fatal]
